FAERS Safety Report 5747722-8 (Version None)
Quarter: 2008Q2

REPORT INFORMATION
  Report Type: 
  Country: None (occurrence: None)
  Receive Date: 20080523
  Receipt Date: 20080522
  Transmission Date: 20081010
  Serious: Yes (Other)
  Sender: FDA-Public Use
  Company Number: US-ASTRAZENECA-2008AC00770

PATIENT
  Age: 16 Year
  Sex: Male

DRUGS (3)
  1. ROPIVACAINE [Suspect]
     Indication: NERVE BLOCK
     Route: 053
  2. WELLBUTRIN SR [Interacting]
     Route: 048
  3. SALINE WITH EPINEPHRINE [Concomitant]
     Dosage: TEST DOSE. WITH EPINEPHRINE 1:200,000

REACTIONS (2)
  - DRUG INTERACTION [None]
  - GRAND MAL CONVULSION [None]
